FAERS Safety Report 13943526 (Version 1)
Quarter: 2017Q3

REPORT INFORMATION
  Report Type: Spontaneous
  Country: ZA (occurrence: ZA)
  Receive Date: 20170907
  Receipt Date: 20170907
  Transmission Date: 20171128
  Serious: Yes (Hospitalization)
  Sender: FDA-Public Use
  Company Number: ZA-CIPLA LTD.-2017ZA16060

PATIENT

DRUGS (2)
  1. INH [Concomitant]
     Active Substance: ISONIAZID
     Indication: PROPHYLAXIS
     Dosage: UNK
     Route: 065
  2. TENOFOVIR/EMTRICITABINE/EFAVIRENZ [Suspect]
     Active Substance: EFAVIRENZ\EMTRICITABINE\TENOFOVIR DISOPROXIL FUMARATE
     Indication: HIV INFECTION
     Dosage: 300/200/600 MG, UNK
     Route: 065

REACTIONS (9)
  - Ataxia [Recovered/Resolved]
  - Vomiting [Unknown]
  - Suicidal ideation [Unknown]
  - Abnormal behaviour [Recovering/Resolving]
  - Paraesthesia [Unknown]
  - Tremor [Unknown]
  - Cerebellar syndrome [Unknown]
  - Malaise [Unknown]
  - Drug level increased [Unknown]
